FAERS Safety Report 10050223 (Version 1)
Quarter: 2014Q1

REPORT INFORMATION
  Report Type: Spontaneous
  Country: US (occurrence: None)
  Receive Date: 20140331
  Receipt Date: 20140331
  Transmission Date: 20141002
  Serious: Yes (Disabling, Other)
  Sender: FDA-Public Use
  Company Number: None

PATIENT
  Age: 53 Year
  Sex: Female
  Weight: 70.31 kg

DRUGS (1)
  1. OXYBUTYNIN [Suspect]
     Indication: BLADDER SPASM
     Dosage: ONE PILL  ONCE DAILY  TAKEN BY MOUTH
     Route: 048
     Dates: start: 20140104, end: 20140322

REACTIONS (7)
  - Amnesia [None]
  - Dysphagia [None]
  - Cough [None]
  - Carpal tunnel syndrome [None]
  - Diarrhoea [None]
  - Speech disorder [None]
  - Thought blocking [None]
